FAERS Safety Report 7449689-3 (Version None)
Quarter: 2011Q2

REPORT INFORMATION
  Report Type: 
  Country: None (occurrence: None)
  Receive Date: 20110502
  Receipt Date: 20110421
  Transmission Date: 20111010
  Serious: Yes (Death, Other)
  Sender: FDA-Public Use
  Company Number: US-CELGENEUS-163-21880-11043022

PATIENT
  Age: 64 Year
  Sex: Male

DRUGS (8)
  1. DAUNORUBICIN HCL [Concomitant]
     Route: 065
  2. VICODIN [Concomitant]
     Route: 065
  3. CYTARABINE [Concomitant]
     Route: 051
  4. SIMVASTATIN [Concomitant]
     Route: 065
  5. PROAIR HFA [Concomitant]
     Route: 055
  6. PRINIVIL [Concomitant]
     Route: 065
  7. IBUPROFEN [Concomitant]
     Route: 065
  8. REVLIMID [Suspect]
     Indication: MYELODYSPLASTIC SYNDROME
     Dosage: 10 MILLIGRAM
     Route: 048
     Dates: start: 20100817, end: 20101005

REACTIONS (4)
  - NEUTROPENIA [None]
  - MYELODYSPLASTIC SYNDROME TRANSFORMATION [None]
  - ACUTE MYELOID LEUKAEMIA [None]
  - THROMBOCYTOPENIA [None]
